FAERS Safety Report 13396819 (Version 1)
Quarter: 2017Q2

REPORT INFORMATION
  Report Type: Report from Study
  Country: US (occurrence: US)
  Receive Date: 20170403
  Receipt Date: 20170403
  Transmission Date: 20170830
  Serious: Yes (Other)
  Sender: FDA-Public Use
  Company Number: US-AMGEN-USASL2017047938

PATIENT
  Age: 61 Year
  Sex: Female

DRUGS (2)
  1. PROLIA [Suspect]
     Active Substance: DENOSUMAB
     Indication: OSTEOPOROSIS
     Dosage: UNK
     Route: 065
     Dates: start: 2015
  2. LEVOTHYROXINE. [Concomitant]
     Active Substance: LEVOTHYROXINE
     Dosage: HALF TABLET A DAY, QD

REACTIONS (5)
  - Hepatic lesion [Unknown]
  - Mobility decreased [Unknown]
  - Nephrolithiasis [Unknown]
  - Rash [Unknown]
  - Pelvic pain [Unknown]

NARRATIVE: CASE EVENT DATE: 2016
